FAERS Safety Report 5343587-7 (Version None)
Quarter: 2007Q2

REPORT INFORMATION
  Report Type: 
  Country: None (occurrence: None)
  Receive Date: 20070604
  Receipt Date: 20070525
  Transmission Date: 20071010
  Serious: Yes (Hospitalization)
  Sender: FDA-Public Use
  Company Number: US-ELI_LILLY_AND_COMPANY-US200705006649

PATIENT
  Age: 60 Year
  Sex: Male

DRUGS (10)
  1. ZYPREXA [Suspect]
     Indication: DEPRESSION
     Dosage: 10 MG, DAILY (1/D)
     Route: 048
     Dates: start: 20050101, end: 20061201
  2. TRAZODONE HCL [Concomitant]
     Dosage: UNK, UNKNOWN
  3. METHOCARBAMOL [Concomitant]
     Dosage: 500 MG, UNKNOWN
  4. ATENOLOL [Concomitant]
     Dosage: UNK, UNKNOWN
  5. GABAPENTIN [Concomitant]
     Dosage: UNK, UNKNOWN
  6. OMEPRAZOLE [Concomitant]
     Dosage: UNK, UNKNOWN
  7. HYDROCODONE BITARTRATE [Concomitant]
     Dosage: UNK, UNKNOWN
  8. ROSUVASTATIN [Concomitant]
     Dosage: UNK, UNKNOWN
  9. PLAVIX [Concomitant]
     Dosage: UNK, UNKNOWN
  10. MULTI-VITAMIN [Concomitant]
     Dosage: UNK, UNKNOWN

REACTIONS (3)
  - CARDIAC ENZYMES INCREASED [None]
  - CHEST PAIN [None]
  - MOOD ALTERED [None]
